FAERS Safety Report 7081232-3 (Version None)
Quarter: 2010Q4

REPORT INFORMATION
  Report Type: 
  Country: None (occurrence: None)
  Receive Date: 20101103
  Receipt Date: 20101027
  Transmission Date: 20110411
  Serious: Yes (Other)
  Sender: FDA-Public Use
  Company Number: US-BAYER-201022534BCC

PATIENT
  Age: 53 Year
  Sex: Female

DRUGS (4)
  1. FINACEA [Suspect]
     Indication: ROSACEA
     Route: 061
     Dates: start: 20050101
  2. METROGEL [Suspect]
     Indication: ROSACEA
  3. LISINOPRIL [Concomitant]
  4. ASPIRIN [Concomitant]

REACTIONS (2)
  - NEUROPATHY PERIPHERAL [None]
  - PARAESTHESIA [None]
